FAERS Safety Report 19257617 (Version 1)
Quarter: 2021Q2

REPORT INFORMATION
  Report Type: Spontaneous
  Country: US (occurrence: US)
  Receive Date: 20210514
  Receipt Date: 20210514
  Transmission Date: 20210717
  Serious: No
  Sender: FDA-Public Use
  Company Number: US-GLAXOSMITHKLINE-USCH2021027702

PATIENT
  Age: 83 Year
  Sex: Female

DRUGS (1)
  1. VOLTAREN ARTHRITIS PAIN [Suspect]
     Active Substance: DICLOFENAC SODIUM
     Indication: ARTHRITIS
     Dates: start: 20210511

REACTIONS (3)
  - Headache [Unknown]
  - Drug ineffective [Unknown]
  - Asthenia [Recovering/Resolving]

NARRATIVE: CASE EVENT DATE: 20210511
